FAERS Safety Report 8965732 (Version 1)
Quarter: 2012Q4

REPORT INFORMATION
  Report Type: Spontaneous
  Country: BR (occurrence: None)
  Receive Date: 20121204
  Receipt Date: 20121204
  Transmission Date: 20130627
  Serious: Yes (Other)
  Sender: FDA-Public Use
  Company Number: VAL_01018_2012

PATIENT
  Age: 33 Year
  Sex: Female
  Weight: 70 kg

DRUGS (1)
  1. PARLODEL [Suspect]
     Indication: LACTATION  INHIBITION THERAPY
     Dosage: 1X/8 HOURS)
     Dates: start: 20121102, end: 20121123

REACTIONS (2)
  - Malaise [None]
  - Blood pressure increased [None]
